FAERS Safety Report 24682981 (Version 2)
Quarter: 2024Q4

REPORT INFORMATION
  Report Type: Spontaneous
  Country: PT (occurrence: PT)
  Receive Date: 20241201
  Receipt Date: 20241204
  Transmission Date: 20250114
  Serious: Yes (Death, Life-Threatening, Hospitalization, Disabling, Other)
  Sender: ALEXION PHARMACEUTICALS
  Company Number: PT-002147023-NVSC2024PT158741

PATIENT
  Age: 56 Year
  Weight: 78 kg

DRUGS (16)
  1. FULVESTRANT [Suspect]
     Active Substance: FULVESTRANT
     Indication: Hormone receptor positive HER2 negative breast cancer
     Dosage: 500 MG, QMO
  2. FULVESTRANT [Suspect]
     Active Substance: FULVESTRANT
     Indication: PIK3CA-activated mutation
     Dosage: 500 MG, QMO
  3. ATENOLOL [Concomitant]
     Active Substance: ATENOLOL
     Indication: General physical condition
     Dosage: UNK
  4. ATENOLOL [Concomitant]
     Active Substance: ATENOLOL
     Indication: Hypertension
     Dosage: UNK
     Route: 065
  5. OLMESARTAN [Concomitant]
     Active Substance: OLMESARTAN
     Indication: General physical condition
     Dosage: UNK
  6. OLMESARTAN [Concomitant]
     Active Substance: OLMESARTAN
     Indication: Hypertension
     Dosage: UNK
     Route: 065
  7. OMEPRAZOLE [Concomitant]
     Active Substance: OMEPRAZOLE
     Indication: General physical condition
     Dosage: UNK
  8. OMEPRAZOLE [Concomitant]
     Active Substance: OMEPRAZOLE
     Dosage: UNK
     Route: 065
  9. ZOLEDRONIC ACID [Concomitant]
     Active Substance: ZOLEDRONIC ACID
     Indication: Skeletal injury
     Dosage: UNK
  10. ZOLEDRONIC ACID [Concomitant]
     Active Substance: ZOLEDRONIC ACID
     Dosage: UNK
     Route: 065
  11. CALCITAB D [Concomitant]
     Indication: General physical condition
     Dosage: UNK
  12. CALCITAB D [Concomitant]
     Dosage: UNK
     Route: 065
  13. FENTANYL [Concomitant]
     Active Substance: FENTANYL
     Indication: Back pain
     Dosage: UNK
  14. FENTANYL [Concomitant]
     Active Substance: FENTANYL
     Dosage: UNK
     Route: 065
  15. METOCLOPRAMIDE [Concomitant]
     Active Substance: METOCLOPRAMIDE
     Indication: Nausea
     Dosage: UNK
  16. METOCLOPRAMIDE [Concomitant]
     Active Substance: METOCLOPRAMIDE
     Dosage: UNK
     Route: 065

REACTIONS (1)
  - Pulmonary embolism [Fatal]
